FAERS Safety Report 10421997 (Version 2)
Quarter: 2014Q3

REPORT INFORMATION
  Report Type: Spontaneous
  Country: GB (occurrence: GB)
  Receive Date: 20140901
  Receipt Date: 20140901
  Transmission Date: 20150326
  Serious: Yes (Death, Other)
  Sender: FDA-Public Use
  Company Number: GB-AUROBINDO-AUR-APL-2014-04676

PATIENT
  Age: 49 Year
  Sex: Male
  Weight: 82 kg

DRUGS (6)
  1. TRAMADOL 50MG CAPSULES, HARD (TRAMADOL) CAPSULE, HARD, 50MG [Interacting]
     Active Substance: TRAMADOL
     Indication: PRODUCT USED FOR UNKNOWN INDICATION
     Dosage: UNK UNK,UNK,
     Route: 065
  2. MOVICOL [Concomitant]
     Active Substance: POLYETHYLENE GLYCOL 3350\POTASSIUM CHLORIDE\SODIUM BICARBONATE\SODIUM CHLORIDE
     Indication: PRODUCT USED FOR UNKNOWN INDICATION
     Dosage: UNK UNK,UNK,
     Route: 065
  3. PARACETAMOL 500 MG SOLUBLE TABLETS (GSL) [Interacting]
     Active Substance: ACETAMINOPHEN
     Indication: PRODUCT USED FOR UNKNOWN INDICATION
     Dosage: UNK UNK,UNK,
     Route: 065
  4. METRONIDAZOLE TABLETS BP 400 MG [Suspect]
     Active Substance: METRONIDAZOLE
     Indication: GINGIVITIS
     Dosage: 400 MG,3 TIMES A DAY,
     Route: 048
     Dates: start: 20140402, end: 20140402
  5. METRONIDAZOLE TABLETS BP 400 MG [Interacting]
     Active Substance: METRONIDAZOLE
     Indication: TOOTH INFECTION
  6. METRONIDAZOLE TABLETS BP 400 MG [Interacting]
     Active Substance: METRONIDAZOLE
     Indication: GINGIVAL INFLAMMATION

REACTIONS (11)
  - Confusional state [Not Recovered/Not Resolved]
  - Neuropathy peripheral [Unknown]
  - Neck pain [Not Recovered/Not Resolved]
  - Vision blurred [Not Recovered/Not Resolved]
  - Tinnitus [Not Recovered/Not Resolved]
  - Inhibitory drug interaction [Not Recovered/Not Resolved]
  - Headache [Not Recovered/Not Resolved]
  - Myalgia [Not Recovered/Not Resolved]
  - Musculoskeletal stiffness [Not Recovered/Not Resolved]
  - Pain [Not Recovered/Not Resolved]
  - Insomnia [Not Recovered/Not Resolved]

NARRATIVE: CASE EVENT DATE: 20140402
